FAERS Safety Report 8815542 (Version 3)
Quarter: 2012Q4

REPORT INFORMATION
  Report Type: 
  Country: JP (occurrence: JP)
  Receive Date: 20120928
  Receipt Date: 20121022
  Transmission Date: 20130627
  Serious: Yes (Disabling)
  Sender: FDA-Public Use
  Company Number: JP-SANOFI-AVENTIS-2012SA071058

PATIENT
  Age: 68 Year
  Sex: Female
  Weight: 51.1 kg

DRUGS (9)
  1. CLEXANE [Suspect]
     Indication: OVARIAN CARCINOSARCOMA
     Route: 058
     Dates: start: 20120913, end: 20120915
  2. CLEXANE [Suspect]
     Indication: DEEP VENOUS THROMBOSIS PROPHYLAXIS
     Route: 058
     Dates: start: 20120913, end: 20120915
  3. ROPION [Concomitant]
     Indication: PAIN RELIEF
     Dosage: frequency: twice daily (BID) or thrice daily (TID)
     Route: 041
     Dates: start: 20120911, end: 20120919
  4. HEPARIN SODIUM [Concomitant]
     Indication: ILL-DEFINED DISORDER
     Dosage: Dose:100 unit(s)
     Route: 042
     Dates: start: 20120912
  5. RASENAZOLIN [Concomitant]
     Indication: INFECTION PROPHYLAXIS
     Route: 041
     Dates: start: 20120911, end: 20120914
  6. ACTIT [Concomitant]
     Indication: FLUID REPLACEMENT
     Route: 041
     Dates: start: 20120912, end: 20120918
  7. PANTOL [Concomitant]
     Indication: BOWEL PERISTALSIS DECREASED
     Dosage: frequency: 6 times a day
     Route: 041
     Dates: start: 20120912, end: 20120918
  8. VEEN D [Concomitant]
     Indication: FLUID REPLACEMENT
     Route: 041
     Dates: start: 20120912, end: 20120918
  9. SOSEGON [Concomitant]
     Indication: PAIN RELIEF
     Dosage: frequency: 0 to QD
     Route: 041
     Dates: start: 20120912, end: 20120921

REACTIONS (9)
  - Extradural haematoma [Recovered/Resolved with Sequelae]
  - Hypoaesthesia [Recovered/Resolved with Sequelae]
  - Diplegia [Recovered/Resolved with Sequelae]
  - Muscular weakness [Recovered/Resolved with Sequelae]
  - Abasia [Recovered/Resolved with Sequelae]
  - Muscular weakness [Not Recovered/Not Resolved]
  - Sensorimotor disorder [Not Recovered/Not Resolved]
  - Dysuria [Unknown]
  - Dyschezia [Unknown]
